FAERS Safety Report 17811045 (Version 1)
Quarter: 2020Q2

REPORT INFORMATION
  Report Type: Spontaneous
  Country: ES (occurrence: ES)
  Receive Date: 20200521
  Receipt Date: 20200521
  Transmission Date: 20200714
  Serious: Yes (Other)
  Sender: FDA-Public Use
  Company Number: ES-GALDERMA-ES2020023961

PATIENT
  Age: 44 Year
  Sex: Female

DRUGS (2)
  1. CLOBETASOL PROPIONATE SHAMPOO [Suspect]
     Active Substance: CLOBETASOL PROPIONATE
     Indication: LICHEN PLANUS
     Dosage: 0.05%
     Route: 061
  2. CLOBETASOL SOLUTION [Concomitant]
     Active Substance: CLOBETASOL
     Indication: LICHEN PLANUS
     Dosage: 0.05%
     Route: 061

REACTIONS (10)
  - Off label use [Recovered/Resolved]
  - Plethoric face [Recovered/Resolved]
  - Intentional product use issue [Recovered/Resolved]
  - Adrenal insufficiency [Recovered/Resolved]
  - Hypertrichosis [Recovered/Resolved]
  - Asthenia [Recovered/Resolved]
  - Weight decreased [Recovered/Resolved]
  - Intentional underdose [Recovered/Resolved]
  - Swelling face [Recovered/Resolved]
  - Cushingoid [Recovered/Resolved]
